FAERS Safety Report 17278306 (Version 1)
Quarter: 2020Q1

REPORT INFORMATION
  Report Type: Spontaneous
  Country: US (occurrence: US)
  Receive Date: 20200116
  Receipt Date: 20200116
  Transmission Date: 20200409
  Serious: Yes (Other)
  Sender: FDA-Public Use
  Company Number: None

PATIENT
  Age: 67 Year
  Sex: Female
  Weight: 72 kg

DRUGS (2)
  1. PRAVASTATIN. [Suspect]
     Active Substance: PRAVASTATIN
     Dates: start: 20191221, end: 20200110
  2. COLCHICINE. [Suspect]
     Active Substance: COLCHICINE
     Dates: start: 20200102, end: 20200110

REACTIONS (2)
  - Musculoskeletal toxicity [None]
  - Myopathy [None]

NARRATIVE: CASE EVENT DATE: 20200110
